FAERS Safety Report 7426856-6 (Version None)
Quarter: 2011Q2

REPORT INFORMATION
  Report Type: 
  Country: None (occurrence: None)
  Receive Date: 20110420
  Receipt Date: 20110411
  Transmission Date: 20111010
  Serious: Yes (Other)
  Sender: FDA-Public Use
  Company Number: US-BAXTER-2011BH011107

PATIENT
  Sex: Female

DRUGS (6)
  1. REGLAN [Suspect]
     Route: 048
     Dates: start: 20080501, end: 20100501
  2. REGLAN [Suspect]
     Indication: PRODUCT USED FOR UNKNOWN INDICATION
     Route: 042
     Dates: start: 20080501, end: 20100501
  3. REGLAN [Suspect]
     Route: 048
     Dates: start: 20080501, end: 20100501
  4. REGLAN [Suspect]
     Route: 048
     Dates: start: 20080501, end: 20100501
  5. REGLAN [Suspect]
     Route: 048
     Dates: start: 20080501, end: 20100501
  6. REGLAN [Suspect]
     Route: 048
     Dates: start: 20080501, end: 20100501

REACTIONS (3)
  - CONVULSION [None]
  - PARKINSON'S DISEASE [None]
  - TREMOR [None]
